FAERS Safety Report 4665706-8 (Version None)
Quarter: 2005Q2

REPORT INFORMATION
  Report Type: 
  Country: None (occurrence: None)
  Receive Date: 20050519
  Receipt Date: 20050510
  Transmission Date: 20051028
  Serious: Yes (Other)
  Sender: FDA-Public Use
  Company Number: PHEH2005US05328

PATIENT
  Age: 71 Year
  Sex: Male

DRUGS (3)
  1. ZELNORM [Suspect]
     Indication: CONSTIPATION
  2. ZETIA [Concomitant]
  3. CLONAZEPAM [Concomitant]

REACTIONS (2)
  - PYREXIA [None]
  - THROMBOCYTOPENIA [None]
